FAERS Safety Report 7544891-4 (Version None)
Quarter: 2011Q2

REPORT INFORMATION
  Report Type: 
  Country: None (occurrence: None)
  Receive Date: 20110614
  Receipt Date: 20110531
  Transmission Date: 20111010
  Serious: Yes (Hospitalization, Other)
  Sender: FDA-Public Use
  Company Number: US-BAYER-201039778NA

PATIENT
  Age: 37 Year
  Sex: Female
  Weight: 77.098 kg

DRUGS (8)
  1. VICOPROFEN [Concomitant]
     Dosage: UNK
     Dates: start: 20080901
  2. DECONGESTANTS AND ANTIALLERGICS [Concomitant]
     Indication: MULTIPLE ALLERGIES
  3. YASMIN [Suspect]
     Indication: CONTRACEPTION
     Route: 048
     Dates: start: 20040701, end: 20080901
  4. PROTONIX [Concomitant]
     Indication: GASTROOESOPHAGEAL REFLUX DISEASE
     Dosage: UNK UNK, CONT
     Dates: start: 20080910
  5. IBUPROFEN [Concomitant]
     Dosage: UNK
     Dates: start: 20080101
  6. ANTIHISTAMINES [Concomitant]
     Indication: MULTIPLE ALLERGIES
  7. KEPPRA [Concomitant]
     Indication: CONVULSION
     Dosage: UNK UNK, CONT
     Dates: start: 20080910
  8. POTASSIUM [POTASSIUM] [Concomitant]
     Dosage: UNK
     Dates: start: 20080901

REACTIONS (3)
  - SWELLING [None]
  - DEEP VEIN THROMBOSIS [None]
  - PAIN IN EXTREMITY [None]
